FAERS Safety Report 8069032-9 (Version None)
Quarter: 2012Q1

REPORT INFORMATION
  Report Type: 
  Country: None (occurrence: None)
  Receive Date: 20120125
  Receipt Date: 20120117
  Transmission Date: 20120608
  Serious: Yes (Hospitalization)
  Sender: FDA-Public Use
  Company Number: US-GENZYME-FABR-1002329

PATIENT
  Sex: Female
  Weight: 58.05 kg

DRUGS (1)
  1. FABRAZYME [Suspect]
     Indication: FABRY'S DISEASE
     Dosage: 70 MG, UNK
     Route: 042
     Dates: start: 20071001

REACTIONS (3)
  - PYREXIA [None]
  - GASTROINTESTINAL ULCER [None]
  - DEVICE RELATED INFECTION [None]
